FAERS Safety Report 13851112 (Version 1)
Quarter: 2017Q3

REPORT INFORMATION
  Report Type: Spontaneous
  Country: CO (occurrence: CO)
  Receive Date: 20170809
  Receipt Date: 20170809
  Transmission Date: 20171127
  Serious: Yes (Death, Other)
  Sender: FDA-Public Use
  Company Number: CO-PFIZER INC-2017344735

PATIENT
  Age: 76 Year
  Sex: Female

DRUGS (1)
  1. PALBOCICLIB [Suspect]
     Active Substance: PALBOCICLIB
     Indication: BREAST CANCER METASTATIC
     Dosage: 1 DF CYCLIC (DAILY, 21 DAYS ON, 7 DAYS OFF)
     Route: 048
     Dates: start: 20170610, end: 20170613

REACTIONS (7)
  - General physical health deterioration [Unknown]
  - Death [Fatal]
  - Pleural effusion [Unknown]
  - Stomatitis [Unknown]
  - Yellow skin [Unknown]
  - Dysphagia [Unknown]
  - Hepatic failure [Unknown]

NARRATIVE: CASE EVENT DATE: 20170614
